FAERS Safety Report 9015324 (Version 1)
Quarter: 2013Q1

REPORT INFORMATION
  Report Type: Spontaneous
  Country: US (occurrence: None)
  Receive Date: 20130109
  Receipt Date: 20130109
  Transmission Date: 20140127
  Serious: Yes (Life-Threatening)
  Sender: FDA-Public Use
  Company Number: None

PATIENT
  Age: 70 Year
  Sex: Female
  Weight: 63.5 kg

DRUGS (1)
  1. SIMCOR [Suspect]
     Indication: LOW DENSITY LIPOPROTEIN INCREASED
     Dosage: 1,000 MG DAILY
     Dates: start: 20120401

REACTIONS (6)
  - Myopathy [None]
  - Headache [None]
  - Muscle spasms [None]
  - Back pain [None]
  - Loss of consciousness [None]
  - Rash [None]
